FAERS Safety Report 8786459 (Version 3)
Quarter: 2013Q2

REPORT INFORMATION
  Report Type: Report from Study
  Country: JP (occurrence: JP)
  Receive Date: 20120914
  Receipt Date: 20130419
  Transmission Date: 20140414
  Serious: Yes (Other)
  Sender: FDA-Public Use
  Company Number: JP-009507513-1209JPN000252

PATIENT
  Age: 62 Year
  Sex: Male
  Weight: 61 kg

DRUGS (18)
  1. PEGINTRON [Suspect]
     Indication: CHRONIC HEPATITIS C
     Dosage: 1.5 MICROGRAM PER KILOGRAM, QW
     Route: 058
     Dates: start: 20120621, end: 20120918
  2. PEGINTRON [Suspect]
     Dosage: 0.8 MICROGRAM PER KILOGRAM, QW
     Route: 058
     Dates: start: 20120925, end: 20120925
  3. REBETOL [Suspect]
     Indication: CHRONIC HEPATITIS C
     Dosage: 600 MG, QD
     Route: 048
     Dates: start: 20120621, end: 20120627
  4. REBETOL [Suspect]
     Dosage: 800 MG, QD
     Route: 048
     Dates: start: 20120628, end: 20120709
  5. REBETOL [Suspect]
     Dosage: 600 MG, QD
     Route: 048
     Dates: start: 20120710, end: 20120827
  6. REBETOL [Suspect]
     Dosage: 400 MG, QD
     Route: 048
     Dates: start: 20120828
  7. TELAVIC [Suspect]
     Indication: CHRONIC HEPATITIS C
     Dosage: 2250 MG, QD
     Route: 048
     Dates: start: 20120621, end: 20120623
  8. MARZULENE-S [Concomitant]
     Indication: PROPHYLAXIS
     Dosage: 0.5 G, QD
     Route: 048
  9. LENDORMIN D [Concomitant]
     Indication: INSOMNIA
     Dosage: 0.25 MG, QD
     Route: 048
     Dates: end: 20120709
  10. AMLODIPINE [Concomitant]
     Indication: HYPERTENSION
     Dosage: 5 MG, QD
     Route: 048
     Dates: end: 20120626
  11. GASLON N [Concomitant]
     Indication: PROPHYLAXIS
     Dosage: 0.5 G, QD, FORMULATION: FGR
     Route: 048
     Dates: end: 20120626
  12. BLOPRESS [Concomitant]
     Indication: HYPERTENSION
     Dosage: 4 MG, QD
     Route: 048
     Dates: end: 20120626
  13. ROHYPNOL [Concomitant]
     Indication: INSOMNIA
     Dosage: 2 MG, QD
     Route: 048
     Dates: end: 20120626
  14. RINDERON VG [Concomitant]
     Indication: PROPHYLAXIS
     Dosage: UNK, QD
     Route: 061
     Dates: end: 20120813
  15. LACTEC [Concomitant]
     Indication: PROPHYLAXIS
     Dosage: 500 ML, QD
     Route: 042
     Dates: start: 20120621, end: 20120628
  16. LOXONIN [Concomitant]
     Indication: PROPHYLAXIS
     Dosage: 60 MG/DAY, PRN
     Route: 048
     Dates: start: 20120621, end: 20121001
  17. MUCOSTA [Concomitant]
     Indication: PROPHYLAXIS
     Dosage: SINGLE USE DURING 100MG/ DAY
     Route: 048
     Dates: start: 20120621, end: 20121001
  18. AMLODIN OD [Concomitant]
     Indication: HYPERTENSION
     Dosage: 5 MG, QD
     Route: 048
     Dates: start: 20120627, end: 20120709

REACTIONS (2)
  - Rash [Recovered/Resolved]
  - White blood cell count decreased [Recovering/Resolving]
